FAERS Safety Report 18657561 (Version 1)
Quarter: 2020Q4

REPORT INFORMATION
  Report Type: Report from Study
  Country: US (occurrence: US)
  Receive Date: 20201223
  Receipt Date: 20201223
  Transmission Date: 20210114
  Serious: Yes (Hospitalization)
  Sender: FDA-Public Use
  Company Number: US-MIKART, LLC-2103423

PATIENT
  Age: 62 Year
  Sex: Female
  Weight: 116.95 kg

DRUGS (25)
  1. ELIQUIS [Suspect]
     Active Substance: APIXABAN
     Route: 048
     Dates: start: 202008, end: 20200909
  2. HYDROCODONE BITARTRATE AND ACETAMINOPHEN [Suspect]
     Active Substance: ACETAMINOPHEN\HYDROCODONE BITARTRATE
     Route: 048
     Dates: start: 20190225, end: 20200923
  3. ADVAIR DISKUS [Concomitant]
     Active Substance: FLUTICASONE PROPIONATE\SALMETEROL XINAFOATE
     Dates: start: 2017
  4. IBUPROFEN. [Concomitant]
     Active Substance: IBUPROFEN
     Dates: start: 2014
  5. ATORVASTATIN [Concomitant]
     Active Substance: ATORVASTATIN
     Dates: start: 20200114
  6. HYDROCODONE BITARTRATE AND ACETAMINOPHEN [Suspect]
     Active Substance: ACETAMINOPHEN\HYDROCODONE BITARTRATE
     Indication: CHEST PAIN
     Route: 048
     Dates: start: 20190225
  7. GABAPENTIN. [Suspect]
     Active Substance: GABAPENTIN
     Route: 048
     Dates: start: 20200909
  8. LORATADINE. [Concomitant]
     Active Substance: LORATADINE
     Dates: start: 2017
  9. POTASSIUM CHLORIDE. [Concomitant]
     Active Substance: POTASSIUM CHLORIDE
     Dates: start: 2016
  10. ALPRAZOLAM. [Suspect]
     Active Substance: ALPRAZOLAM
     Route: 048
     Dates: start: 2017
  11. ALBUTEROL. [Concomitant]
     Active Substance: ALBUTEROL
     Dates: start: 2014
  12. METOPROLOL. [Concomitant]
     Active Substance: METOPROLOL
     Dates: start: 202006
  13. REQUIP [Concomitant]
     Active Substance: ROPINIROLE HYDROCHLORIDE
     Dates: start: 2016
  14. DEPAKOTE [Concomitant]
     Active Substance: DIVALPROEX SODIUM
     Dates: start: 2018
  15. GABAPENTIN. [Suspect]
     Active Substance: GABAPENTIN
     Route: 048
     Dates: start: 20200114, end: 20200909
  16. FIORICET [Concomitant]
     Active Substance: ACETAMINOPHEN\BUTALBITAL\CAFFEINE
     Dates: start: 2016
  17. IRON SUPPLEMENT [Concomitant]
     Active Substance: IRON
  18. PROTONIX [Concomitant]
     Active Substance: PANTOPRAZOLE SODIUM
     Dates: start: 2016
  19. PAXIL [Concomitant]
     Active Substance: PAROXETINE HYDROCHLORIDE
     Dates: start: 2015
  20. ASPIRIN. [Concomitant]
     Active Substance: ASPIRIN
     Dates: start: 2015
  21. BENADRYL [Concomitant]
     Active Substance: DIPHENHYDRAMINE HYDROCHLORIDE
     Dates: start: 2012
  22. ZANTAC 150 (RANITIDINE HYDROCHLORIDE) [Concomitant]
     Active Substance: RANITIDINE HYDROCHLORIDE
     Route: 048
     Dates: start: 2014, end: 201912
  23. LASIX [Concomitant]
     Active Substance: FUROSEMIDE
     Dates: start: 2015
  24. SEROQUEL [Concomitant]
     Active Substance: QUETIAPINE FUMARATE
     Dates: start: 2016
  25. MELATONIN [Concomitant]
     Active Substance: MELATONIN
     Dates: start: 2018

REACTIONS (1)
  - Metabolic encephalopathy [Recovered/Resolved]

NARRATIVE: CASE EVENT DATE: 20200908
